FAERS Safety Report 15155126 (Version 1)
Quarter: 2018Q3

REPORT INFORMATION
  Report Type: Report from Study
  Country: US (occurrence: US)
  Receive Date: 20180717
  Receipt Date: 20180717
  Transmission Date: 20181010
  Serious: No
  Sender: FDA-Public Use
  Company Number: PHEH2018US028810

PATIENT
  Sex: Female

DRUGS (1)
  1. COSENTYX [Suspect]
     Active Substance: SECUKINUMAB
     Indication: PSORIATIC ARTHROPATHY
     Dosage: 300 OT, Q4W
     Route: 065
     Dates: start: 20180118

REACTIONS (2)
  - Vulvovaginal candidiasis [Unknown]
  - Haematuria [Unknown]

NARRATIVE: CASE EVENT DATE: 201804
